FAERS Safety Report 4264761-7 (Version None)
Quarter: 2004Q1

REPORT INFORMATION
  Report Type: 
  Country: None (occurrence: None)
  Receive Date: 20040106
  Receipt Date: 20031230
  Transmission Date: 20041129
  Serious: Yes (Hospitalization)
  Sender: FDA-Public Use
  Company Number: PHNU2003DE04504

PATIENT
  Sex: Female

DRUGS (2)
  1. TEGRETOL-XR [Suspect]
     Indication: EPILEPSY
     Dosage: 800 MG, BID
     Dates: start: 19930101, end: 20031201
  2. TEGRETOL-XR [Suspect]
     Dosage: 1400 MG/D (600-0-800
     Dates: start: 20031201

REACTIONS (4)
  - DIFFICULTY IN WALKING [None]
  - GAIT DISTURBANCE [None]
  - MOYAMOYA DISEASE [None]
  - NEUROFIBROMATOSIS [None]
